FAERS Safety Report 20902732 (Version 4)
Quarter: 2022Q2

REPORT INFORMATION
  Report Type: Report from Study
  Country: CA (occurrence: CA)
  Receive Date: 20220601
  Receipt Date: 20220627
  Transmission Date: 20220721
  Serious: Yes (Hospitalization, Other)
  Sender: FDA-Public Use
  Company Number: CA-GILEAD-2022-0581100

PATIENT
  Age: 41 Year
  Sex: Female

DRUGS (10)
  1. SACITUZUMAB GOVITECAN [Suspect]
     Active Substance: SACITUZUMAB GOVITECAN
     Indication: Triple negative breast cancer
     Dosage: 620 MG
     Route: 042
     Dates: start: 20220506
  2. FAMOTIDINE [Concomitant]
     Active Substance: FAMOTIDINE
     Dosage: 40 MG (PRE- MEDICATION PRIOR TO TRODELVY)
  3. FAMOTIDINE [Concomitant]
     Active Substance: FAMOTIDINE
     Dosage: 40 MG PO (PRE-MEDICATION PRIOR TO TRODELVY)
  4. DEXAMETHASONE [Concomitant]
     Active Substance: DEXAMETHASONE
     Dosage: 8 MG (PRE- MEDICATION PRIOR TO TRODELVY)
  5. DEXAMETHASONE [Concomitant]
     Active Substance: DEXAMETHASONE
     Dosage: 8 MG PO (PRE-MEDICATION PRIOR TO TRODELVY)
  6. ACETAMINOPHEN [Concomitant]
     Active Substance: ACETAMINOPHEN
     Dosage: 1000 MG (PRE- MEDICATION PRIOR TO TRODELVY)
  7. ERIBULIN [Concomitant]
     Active Substance: ERIBULIN
     Dosage: UNK
  8. BENADRYL [Concomitant]
     Active Substance: DIPHENHYDRAMINE HYDROCHLORIDE
     Indication: Premedication
     Dosage: 50 IV  (PRE-MEDICATION PRIOR TO TRODELVY)
  9. BENADRYL [Concomitant]
     Active Substance: DIPHENHYDRAMINE HYDROCHLORIDE
     Dosage: 50 MG PO (PRE-MEDICATION PRIOR TO TRODELVY)
  10. ACETAMINOPHEN [Concomitant]
     Active Substance: ACETAMINOPHEN
     Indication: Premedication
     Dosage: 1000 MG PO (PRE-MEDICATION PRIOR TO TRODELVY)

REACTIONS (11)
  - Enterocolitis [Unknown]
  - Septic shock [Unknown]
  - Terminal state [Not Recovered/Not Resolved]
  - Febrile neutropenia [Unknown]
  - Device issue [Unknown]
  - Device occlusion [Recovered/Resolved]
  - Malaise [Unknown]
  - Malaise [Unknown]
  - Weight decreased [Unknown]
  - Hypotension [Unknown]
  - Fatigue [Unknown]

NARRATIVE: CASE EVENT DATE: 20220513
